FAERS Safety Report 15506955 (Version 1)
Quarter: 2018Q4

REPORT INFORMATION
  Report Type: Spontaneous
  Country: FR (occurrence: FR)
  Receive Date: 20181016
  Receipt Date: 20181016
  Transmission Date: 20190205
  Serious: Yes (Other)
  Sender: FDA-Public Use
  Company Number: FR-BAXTER-2018BAX025424

PATIENT
  Age: 9 Year
  Sex: Male
  Weight: 31 kg

DRUGS (1)
  1. EAU POUR PREPARATIONS INJECTABLES VIAFLO, SOLVANT POUR PR?PARATION PAR [Suspect]
     Active Substance: WATER
     Indication: FLUID REPLACEMENT
     Route: 042
     Dates: start: 20180814, end: 20180814

REACTIONS (5)
  - Electrolyte imbalance [Recovered/Resolved]
  - Hyponatraemia [Recovered/Resolved]
  - Wrong drug [Recovered/Resolved]
  - Hypokalaemia [Recovered/Resolved]
  - Blood osmolarity decreased [Recovered/Resolved]

NARRATIVE: CASE EVENT DATE: 20180814
